FAERS Safety Report 9689780 (Version 1)
Quarter: 2013Q4

REPORT INFORMATION
  Report Type: Report from Study
  Country: US (occurrence: US)
  Receive Date: 20131115
  Receipt Date: 20131115
  Transmission Date: 20140711
  Serious: Yes (Other)
  Sender: FDA-Public Use
  Company Number: US-ROCHE-1300007

PATIENT
  Age: 57 Year
  Sex: Male

DRUGS (10)
  1. RITUXAN [Suspect]
     Indication: LYMPHOMA
     Dosage: 1300MG (AT 500MG/M SQUARED)
     Route: 042
     Dates: start: 20130913
  2. RITUXAN [Suspect]
     Dosage: 1290MG (AT 500MG/M SQUARED)IV ONCE SHORT OVER 90 MINUTES IN NS 500ML (5 AT THE RATE OF 333ML/HOUR)
     Route: 042
     Dates: start: 20130828
  3. RITUXAN [Suspect]
     Dosage: 1300MG (AT 500MG/M SQUARED) IV ONCE SHORT OVER 90 MINUTES IN NS 500ML (5 AT THE RATE OF 333ML/HOUR)
     Route: 042
     Dates: start: 20131029
  4. RITUXAN [Suspect]
     Dosage: 1300MG (AT 500MG/M SQUARED) IV ONCE SHORT OVER 90 MINUTES IN NS 500ML (5 AT THE RATE OF 333ML/HOUR)
     Route: 042
     Dates: start: 20131101
  5. PEPCID [Concomitant]
     Route: 042
  6. NORMAL SALINE [Concomitant]
     Route: 042
  7. TYLENOL [Concomitant]
     Route: 048
  8. BENADRYL (CANADA) [Concomitant]
     Route: 042
  9. LASIX [Concomitant]
     Route: 042
  10. DECADRON [Concomitant]
     Route: 042

REACTIONS (17)
  - Ascites [Unknown]
  - Fatigue [Unknown]
  - Influenza like illness [Unknown]
  - Neutropenia [Unknown]
  - White blood cell count decreased [Unknown]
  - Red cell distribution width increased [Unknown]
  - Neutrophil count increased [Unknown]
  - Neutrophil count decreased [Unknown]
  - Eosinophil count increased [Unknown]
  - Lymphocyte count decreased [Unknown]
  - Blood sodium decreased [Unknown]
  - Blood glucose increased [Unknown]
  - Blood albumin decreased [Unknown]
  - Protein total decreased [Unknown]
  - Diarrhoea [Unknown]
  - Paraesthesia [Unknown]
  - Sleep disorder [Unknown]
